FAERS Safety Report 23482646 (Version 1)
Quarter: 2024Q1

REPORT INFORMATION
  Report Type: Spontaneous
  Country: US (occurrence: None)
  Receive Date: 20240204
  Receipt Date: 20240204
  Transmission Date: 20240410
  Serious: Yes (Disabling)
  Sender: FDA-Public Use
  Company Number: None

PATIENT
  Age: 55 Year
  Sex: Female
  Weight: 90 kg

DRUGS (9)
  1. FAMOTIDINE [Suspect]
     Active Substance: FAMOTIDINE
     Indication: Dyspepsia
     Dates: start: 20240202, end: 20240204
  2. PANTOPRAZOLE [Suspect]
     Active Substance: PANTOPRAZOLE
  3. zyertec [Concomitant]
  4. benaepril [Concomitant]
  5. HYDROCHLOROTHIAZIDE [Concomitant]
  6. MONTELUKAST [Concomitant]
     Active Substance: MONTELUKAST SODIUM
  7. LISDEXAMFETAMINE [Concomitant]
  8. D-Amphetamine Salt [Concomitant]
  9. Lity of the desert Aloe herboal Stomach Formula [Concomitant]

REACTIONS (5)
  - Back pain [None]
  - Musculoskeletal stiffness [None]
  - Movement disorder [None]
  - Pain [None]
  - Therapy change [None]

NARRATIVE: CASE EVENT DATE: 20240203
